FAERS Safety Report 9747773 (Version 1)
Quarter: 2013Q4

REPORT INFORMATION
  Report Type: Spontaneous
  Country: GB (occurrence: GB)
  Receive Date: 20131212
  Receipt Date: 20131212
  Transmission Date: 20140711
  Serious: Yes (Hospitalization, Other)
  Sender: FDA-Public Use
  Company Number: GB-AMGEN-GBRSP2013086190

PATIENT
  Age: 55 Year
  Sex: Male

DRUGS (4)
  1. CINACALCET HCL [Suspect]
     Indication: HYPERPARATHYROIDISM SECONDARY
     Dosage: UNK
     Route: 065
     Dates: start: 200911
  2. ALFACALCIDOL [Concomitant]
     Dosage: 0.75 MUG, QD
  3. SEVELAMER HYDROCHLORIDE [Concomitant]
     Dosage: 2.4 G, TID
  4. TINZAPARIN [Concomitant]

REACTIONS (4)
  - Congestive cardiomyopathy [Recovered/Resolved]
  - Cardiac failure congestive [Recovered/Resolved]
  - Transplant failure [Unknown]
  - Renal vein thrombosis [Unknown]
